FAERS Safety Report 15552367 (Version 1)
Quarter: 2018Q4

REPORT INFORMATION
  Report Type: Spontaneous
  Country: US (occurrence: US)
  Receive Date: 20181025
  Receipt Date: 20181025
  Transmission Date: 20190205
  Serious: Yes (Other)
  Sender: FDA-Public Use
  Company Number: US-IMPAX LABORATORIES, INC-2018-IPXL-03431

PATIENT
  Age: 55 Year
  Sex: Male

DRUGS (5)
  1. EMPAGLIFLOZIN [Suspect]
     Active Substance: EMPAGLIFLOZIN
     Indication: TYPE 2 DIABETES MELLITUS
     Dosage: 25 MG, ONCE DAILY
     Route: 065
  2. SITAGLIPTIN [Suspect]
     Active Substance: SITAGLIPTIN
     Indication: TYPE 2 DIABETES MELLITUS
     Dosage: 50 MG, TWO TIMES DAILY
     Route: 065
  3. GLIPIZIDE. [Suspect]
     Active Substance: GLIPIZIDE
     Dosage: 5 MG, TWO TIMES DAILY
     Route: 065
  4. METFORMIN HYDROCHLORIDE ER [Suspect]
     Active Substance: METFORMIN HYDROCHLORIDE
     Indication: TYPE 2 DIABETES MELLITUS
     Dosage: 1000 MG, TWO TIMES DAILY
     Route: 065
  5. GLIPIZIDE. [Suspect]
     Active Substance: GLIPIZIDE
     Indication: TYPE 2 DIABETES MELLITUS
     Dosage: 5 MG, ONCE DAILY
     Route: 065

REACTIONS (2)
  - Euglycaemic diabetic ketoacidosis [Recovering/Resolving]
  - Wound infection [Unknown]
